FAERS Safety Report 24262565 (Version 1)
Quarter: 2024Q3

REPORT INFORMATION
  Report Type: Spontaneous
  Country: PK (occurrence: PK)
  Receive Date: 20240829
  Receipt Date: 20240829
  Transmission Date: 20241017
  Serious: Yes (Life-Threatening, Hospitalization)
  Sender: SANDOZ
  Company Number: PK-MLMSERVICE-20240731-PI146120-00068-2

PATIENT
  Age: 27 Day
  Sex: Male
  Weight: 4 kg

DRUGS (1)
  1. BRIMONIDINE TARTRATE [Suspect]
     Active Substance: BRIMONIDINE TARTRATE
     Indication: Product used for unknown indication
     Dosage: 1 DROP OPHTHALMIC SOLUTION
     Route: 048

REACTIONS (4)
  - Neonatal respiratory depression [Recovered/Resolved]
  - Depressed level of consciousness [Recovered/Resolved]
  - Hyperglycaemia [Unknown]
  - Wrong product administered [Recovered/Resolved]
